FAERS Safety Report 23361192 (Version 1)
Quarter: 2024Q1

REPORT INFORMATION
  Report Type: Spontaneous
  Country: US (occurrence: None)
  Receive Date: 20240102
  Receipt Date: 20240102
  Transmission Date: 20240410
  Serious: No
  Sender: FDA-Public Use
  Company Number: None

PATIENT
  Sex: Female

DRUGS (1)
  1. COPAXONE [Suspect]
     Active Substance: GLATIRAMER ACETATE
     Indication: Multiple sclerosis
     Dosage: 40MG/ML SUBCUTANEOUS?? INJECT ONE SYRINGE  SUBCUTANEOUSLY THREE TIMES PER WEEK ON MONDAY, WEDNESDAY,
     Route: 058
     Dates: start: 202011

REACTIONS (1)
  - Drug ineffective [None]
